FAERS Safety Report 12215268 (Version 1)
Quarter: 2016Q1

REPORT INFORMATION
  Report Type: Spontaneous
  Country: US (occurrence: US)
  Receive Date: 20160328
  Receipt Date: 20160328
  Transmission Date: 20160526
  Serious: Yes (Other)
  Sender: FDA-Public Use
  Company Number: US-MDT-ADR-2016-00105

PATIENT
  Age: 13 Year
  Sex: Female

DRUGS (1)
  1. LIORESAL [Suspect]
     Active Substance: BACLOFEN
     Indication: MUSCLE SPASTICITY
     Dosage: 328MCG/DAY
     Route: 037

REACTIONS (1)
  - Drug withdrawal syndrome [Unknown]

NARRATIVE: CASE EVENT DATE: 20160113
